FAERS Safety Report 6151980-8 (Version None)
Quarter: 2009Q2

REPORT INFORMATION
  Report Type: 
  Country: None (occurrence: None)
  Receive Date: 20090408
  Receipt Date: 20090327
  Transmission Date: 20091009
  Serious: Yes (Hospitalization)
  Sender: FDA-Public Use
  Company Number: 2009-0326

PATIENT
  Age: 61 Year
  Sex: Female

DRUGS (3)
  1. SOMATULINE DEPOT [Suspect]
     Indication: SHORT-BOWEL SYNDROME
     Dosage: (120 MG, 1 IN 1 M) SUBCUTANEOUS
     Route: 058
     Dates: start: 20090215
  2. INFLIXMAB [Concomitant]
  3. LEVOTHYROX [Concomitant]

REACTIONS (4)
  - HYPOCALCAEMIA [None]
  - HYPOMAGNESAEMIA [None]
  - HYPOPARATHYROIDISM [None]
  - OFF LABEL USE [None]
